FAERS Safety Report 16366033 (Version 2)
Quarter: 2019Q2

REPORT INFORMATION
  Report Type: Spontaneous
  Country: US (occurrence: US)
  Receive Date: 20190529
  Receipt Date: 20190626
  Transmission Date: 20190711
  Serious: Yes (Disabling, Other)
  Sender: FDA-Public Use
  Company Number: US-SA-2019SA146492

PATIENT
  Age: 65 Year
  Sex: Female
  Weight: 70.7 kg

DRUGS (2)
  1. DUPIXENT [Suspect]
     Active Substance: DUPILUMAB
     Indication: ECZEMA
     Dosage: 600 MG, 1X
     Route: 058
     Dates: start: 201902
  2. DUPIXENT [Suspect]
     Active Substance: DUPILUMAB
     Dosage: 300 MG, QOW
     Route: 058
     Dates: start: 2019

REACTIONS (4)
  - Eczema [Unknown]
  - Condition aggravated [Not Recovered/Not Resolved]
  - Loss of personal independence in daily activities [Recovered/Resolved]
  - Xerophthalmia [Not Recovered/Not Resolved]

NARRATIVE: CASE EVENT DATE: 201902
